FAERS Safety Report 11309233 (Version 1)
Quarter: 2015Q3

REPORT INFORMATION
  Report Type: Report from Study
  Country: US (occurrence: US)
  Receive Date: 20150724
  Receipt Date: 20150724
  Transmission Date: 20151125
  Serious: Yes (Other)
  Sender: FDA-Public Use
  Company Number: US-ASTRAZENECA-2015SE70818

PATIENT
  Age: 292 Month
  Sex: Male
  Weight: 85.3 kg

DRUGS (1)
  1. GENERIC NEXIUM [Suspect]
     Active Substance: ESOMEPRAZOLE MAGNESIUM
     Indication: GASTROOESOPHAGEAL REFLUX DISEASE
     Route: 048
     Dates: start: 20150703, end: 20150716

REACTIONS (5)
  - Gastrointestinal disorder [Unknown]
  - Constipation [Unknown]
  - Diarrhoea [Unknown]
  - Sleep disorder due to a general medical condition [Unknown]
  - Off label use [Unknown]

NARRATIVE: CASE EVENT DATE: 201507
